FAERS Safety Report 6591113-7 (Version None)
Quarter: 2010Q1

REPORT INFORMATION
  Report Type: 
  Country: None (occurrence: None)
  Receive Date: 20100219
  Receipt Date: 20100211
  Transmission Date: 20100710
  Serious: Yes (Hospitalization)
  Sender: FDA-Public Use
  Company Number: ES-ELI_LILLY_AND_COMPANY-ES201002000160

PATIENT
  Age: 62 Year
  Sex: Male
  Weight: 86 kg

DRUGS (5)
  1. PEMETREXED [Suspect]
     Indication: LUNG ADENOCARCINOMA
     Dosage: UNK, DAY 1 OF EACH CYCLE
     Route: 042
     Dates: start: 20090520
  2. CISPLATIN [Concomitant]
     Indication: LUNG NEOPLASM MALIGNANT
     Dosage: 75 MG/M2, UNKNOWN
     Dates: start: 20090520
  3. VITAMIN B-12 [Concomitant]
     Dosage: 1000 MG, UNK
     Route: 030
     Dates: start: 20090512
  4. FOLIC ACID [Concomitant]
     Dosage: 5 MG, UNK
     Route: 048
     Dates: start: 20090512
  5. CORTICOSTEROIDS [Concomitant]
     Dosage: 4 MG, UNK
     Route: 048
     Dates: start: 20090519

REACTIONS (1)
  - ARTHRITIS [None]
